FAERS Safety Report 5571839-4 (Version None)
Quarter: 2007Q4

REPORT INFORMATION
  Report Type: 
  Country: None (occurrence: None)
  Receive Date: 20071221
  Receipt Date: 20071214
  Transmission Date: 20080405
  Serious: Yes (Hospitalization)
  Sender: FDA-Public Use
  Company Number: US-AMGEN-US230773

PATIENT
  Sex: Female
  Weight: 56.8 kg

DRUGS (1)
  1. SENSIPAR [Suspect]
     Indication: HYPERPARATHYROIDISM SECONDARY
     Route: 048
     Dates: start: 20050817

REACTIONS (3)
  - ANKLE FRACTURE [None]
  - NAUSEA [None]
  - VOMITING [None]
